FAERS Safety Report 25926141 (Version 1)
Quarter: 2025Q4

REPORT INFORMATION
  Report Type: Spontaneous
  Country: US (occurrence: US)
  Receive Date: 20251015
  Receipt Date: 20251015
  Transmission Date: 20260118
  Serious: No
  Sender: ABBVIE
  Company Number: US-ABBVIE-6500649

PATIENT
  Sex: Female

DRUGS (1)
  1. LEXAPRO [Suspect]
     Active Substance: ESCITALOPRAM OXALATE
     Indication: Generalised anxiety disorder
     Route: 048

REACTIONS (5)
  - Depressed mood [Unknown]
  - Dizziness [Unknown]
  - Gastrointestinal hypermotility [Unknown]
  - Vomiting [Unknown]
  - Hyperhidrosis [Unknown]
